FAERS Safety Report 6615712-9 (Version None)
Quarter: 2010Q1

REPORT INFORMATION
  Report Type: 
  Country: None (occurrence: None)
  Receive Date: 20100305
  Receipt Date: 20100301
  Transmission Date: 20100710
  Serious: Yes (Other)
  Sender: FDA-Public Use
  Company Number: US-BAYER-201014385NA

PATIENT
  Age: 68 Year
  Sex: Male

DRUGS (2)
  1. NEXAVAR [Suspect]
     Indication: HEPATIC NEOPLASM MALIGNANT
     Dosage: TOTAL DAILY DOSE: 800 MG  UNIT DOSE: 200 MG
     Route: 048
     Dates: start: 20100129
  2. NORCO [Concomitant]
     Indication: ABDOMINAL PAIN UPPER

REACTIONS (8)
  - DIARRHOEA [None]
  - HEADACHE [None]
  - NAIL GROWTH ABNORMAL [None]
  - OROPHARYNGEAL PAIN [None]
  - PAIN [None]
  - PAIN IN EXTREMITY [None]
  - PALPITATIONS [None]
  - PYREXIA [None]
